FAERS Safety Report 11640392 (Version 1)
Quarter: 2015Q4

REPORT INFORMATION
  Report Type: Spontaneous
  Country: US (occurrence: US)
  Receive Date: 20151019
  Receipt Date: 20151019
  Transmission Date: 20160304
  Serious: No
  Sender: FDA-Public Use
  Company Number: US-ASTRAZENECA-2015SE97535

PATIENT
  Age: 33 Year
  Sex: Male

DRUGS (2)
  1. SEROQUEL XR [Suspect]
     Active Substance: QUETIAPINE FUMARATE
     Indication: PSYCHOTIC DISORDER
     Route: 048
  2. EFFEXOR [Concomitant]
     Active Substance: VENLAFAXINE HYDROCHLORIDE
     Indication: DEPRESSION
     Dosage: DAILY
     Route: 048
     Dates: end: 201509

REACTIONS (3)
  - Off label use [Unknown]
  - Drug screen positive [Unknown]
  - Product use issue [Unknown]

NARRATIVE: CASE EVENT DATE: 20151007
